FAERS Safety Report 15852167 (Version 1)
Quarter: 2019Q1

REPORT INFORMATION
  Report Type: Spontaneous
  Country: ES (occurrence: ES)
  Receive Date: 20190122
  Receipt Date: 20190122
  Transmission Date: 20190417
  Serious: Yes (Hospitalization)
  Sender: FDA-Public Use
  Company Number: ES-B.I. PHARMACEUTICALS,INC./RIDGEFIELD-2019-12-000259

PATIENT
  Age: 61 Year
  Sex: Male
  Weight: 85 kg

DRUGS (10)
  1. ROSUVASTATINA [Concomitant]
     Active Substance: ROSUVASTATIN
     Indication: PRODUCT USED FOR UNKNOWN INDICATION
     Dosage: STRENGTH- 10 MG / 28 COMPRIMIDOS
     Route: 065
     Dates: start: 20180420
  2. JARDIANCE [Suspect]
     Active Substance: EMPAGLIFLOZIN
     Dosage: 1 TABLET EVERY DAY
     Route: 048
     Dates: start: 20180307, end: 20181123
  3. OMEPRAZOL [Concomitant]
     Active Substance: OMEPRAZOLE
     Indication: PRODUCT USED FOR UNKNOWN INDICATION
     Dosage: STRENGTH-20 MG / 28 CAPSULAS
     Route: 065
     Dates: start: 20120125
  4. TOUJEO [Concomitant]
     Active Substance: INSULIN GLARGINE
     Indication: TYPE 2 DIABETES MELLITUS
     Dosage: 0 IU AT BREAKFAST, 0 IU AT LUNCH, 82 IU AT DINNER
     Route: 058
     Dates: start: 20180628
  5. ADIRO [Concomitant]
     Active Substance: ASPIRIN
     Indication: PERIPHERAL VASCULAR DISORDER
     Dosage: STRENGTH-100MG 30 COMPRIMIDOS RECUBIERTOS
     Route: 065
     Dates: start: 20131205
  6. RESINCALCIO [Concomitant]
     Active Substance: CALCIUM POLYSTYRENE SULFONATE
     Indication: PRODUCT USED FOR UNKNOWN INDICATION
     Dosage: STRENGTH-15G 26 SOBRES
     Route: 065
     Dates: start: 20180906
  7. JANUMET [Concomitant]
     Active Substance: METFORMIN HYDROCHLORIDE\SITAGLIPTIN PHOSPHATE
     Indication: TYPE 2 DIABETES MELLITUS
     Dosage: 1 TABLET EVERY 12 HOURS, STRENGTH- 50MG/1000MG
     Route: 048
     Dates: start: 20151026
  8. EMCONCOR COR [Concomitant]
     Active Substance: BISOPROLOL
     Indication: PERIPHERAL ARTERIAL OCCLUSIVE DISEASE
     Dosage: STRENGTH-5MG 28 COMPRIMIDOS
     Route: 065
     Dates: start: 20110505
  9. JARDIANCE [Suspect]
     Active Substance: EMPAGLIFLOZIN
     Indication: TYPE 2 DIABETES MELLITUS
     Dosage: 1 TABLET EVERY DAY
     Route: 048
     Dates: start: 20170904, end: 20180307
  10. MINITRAN [Concomitant]
     Active Substance: NITROGLYCERIN
     Indication: MYOCARDIAL ISCHAEMIA
     Dosage: STRENGTH-10MG 30 PARCHES TRANSDERMICOS
     Route: 065
     Dates: start: 20110214

REACTIONS (1)
  - Skin ulcer [Recovering/Resolving]

NARRATIVE: CASE EVENT DATE: 20181116
